FAERS Safety Report 8086884-7 (Version None)
Quarter: 2012Q1

REPORT INFORMATION
  Report Type: 
  Country: None (occurrence: None)
  Receive Date: 20120128
  Receipt Date: 20110614
  Transmission Date: 20120608
  Serious: No
  Sender: FDA-Public Use
  Company Number: US-ABBOTT-11P-163-0732208-00

PATIENT
  Age: 47 Year
  Sex: Female

DRUGS (4)
  1. METHOTREXATE [Concomitant]
     Indication: PRODUCT USED FOR UNKNOWN INDICATION
     Dosage: 2.5MG; 6 TABLETS ONCE A WEEK
  2. PREDNISONE TAB [Concomitant]
     Indication: PRODUCT USED FOR UNKNOWN INDICATION
     Dosage: 20 MG UNSPECIFIED FREQUENCY
  3. HUMIRA [Suspect]
     Indication: CROHN'S DISEASE
  4. SYMBYAX [Concomitant]
     Indication: DEPRESSION
     Dosage: 6/25 MG EVERY NIGHT
     Dates: start: 20090101

REACTIONS (4)
  - INJECTION SITE REACTION [None]
  - INJECTION SITE WARMTH [None]
  - INJECTION SITE SWELLING [None]
  - INJECTION SITE ERYTHEMA [None]
